APPROVED DRUG PRODUCT: ZEPATIER
Active Ingredient: ELBASVIR; GRAZOPREVIR
Strength: 50MG;100MG
Dosage Form/Route: TABLET;ORAL
Application: N208261 | Product #001
Applicant: MERCK SHARP AND DOHME LLC A SUB OF MERCK AND CO INC
Approved: Jan 28, 2016 | RLD: Yes | RS: No | Type: DISCN

PATENTS:
Patent 8871759 | Expires: May 4, 2031
Patent 7973040 | Expires: Jul 24, 2029